FAERS Safety Report 6166631-6 (Version None)
Quarter: 2009Q2

REPORT INFORMATION
  Report Type: 
  Country: None (occurrence: None)
  Receive Date: 20090423
  Receipt Date: 20090423
  Transmission Date: 20091009
  Serious: No
  Sender: FDA-Public Use
  Company Number: None

PATIENT
  Age: 3 Year
  Sex: Male
  Weight: 23.6 kg

DRUGS (1)
  1. HUMALOG [Suspect]

REACTIONS (1)
  - BLOOD GLUCOSE FLUCTUATION [None]
